FAERS Safety Report 6693037-3 (Version None)
Quarter: 2010Q2

REPORT INFORMATION
  Report Type: 
  Country: None (occurrence: None)
  Receive Date: 20100422
  Receipt Date: 20100413
  Transmission Date: 20101027
  Serious: Yes (Hospitalization, Other)
  Sender: FDA-Public Use
  Company Number: IN-ELI_LILLY_AND_COMPANY-IN201004004875

PATIENT
  Age: 50 Year
  Sex: Male

DRUGS (2)
  1. XIGRIS [Suspect]
     Indication: UROSEPSIS
     Dosage: UNK, UNKNOWN
     Route: 065
     Dates: start: 20100408, end: 20100401
  2. XIGRIS [Suspect]
     Dosage: UNK, UNKNOWN
     Route: 065
     Dates: start: 20100401, end: 20100413

REACTIONS (5)
  - HAEMORRHAGE [None]
  - MULTI-ORGAN DISORDER [None]
  - PLATELET COUNT DECREASED [None]
  - RENAL IMPAIRMENT [None]
  - RESPIRATORY DISORDER [None]
